FAERS Safety Report 7904035-3 (Version None)
Quarter: 2011Q4

REPORT INFORMATION
  Report Type: 
  Country: None (occurrence: None)
  Receive Date: 20111109
  Receipt Date: 20111103
  Transmission Date: 20120403
  Serious: Yes (Death, Other)
  Sender: FDA-Public Use
  Company Number: ES-CELGENEUS-144-21880-11110274

PATIENT

DRUGS (4)
  1. REVLIMID [Suspect]
     Indication: AMYLOIDOSIS
  2. REVLIMID [Suspect]
  3. REVLIMID [Suspect]
     Indication: MYELOFIBROSIS
  4. REVLIMID [Suspect]
     Indication: MULTIPLE MYELOMA
     Route: 048

REACTIONS (17)
  - POLYNEUROPATHY [None]
  - CONFUSIONAL STATE [None]
  - COUGH [None]
  - DYSPNOEA [None]
  - NO THERAPEUTIC RESPONSE [None]
  - THROMBOCYTOPENIA [None]
  - DEEP VEIN THROMBOSIS [None]
  - NEUTROPENIA [None]
  - NEUROPATHY PERIPHERAL [None]
  - DEATH [None]
  - ANAEMIA [None]
  - SEPSIS [None]
  - PYREXIA [None]
  - PULMONARY EMBOLISM [None]
  - PANCYTOPENIA [None]
  - PNEUMONIA [None]
  - BONE PAIN [None]
